FAERS Safety Report 10762891 (Version 3)
Quarter: 2015Q3

REPORT INFORMATION
  Report Type: Report from Study
  Country: CA (occurrence: CA)
  Receive Date: 20150204
  Receipt Date: 20150806
  Transmission Date: 20151125
  Serious: Yes (Hospitalization, Other)
  Sender: FDA-Public Use
  Company Number: CA-ABBVIE-15K-028-1340689-00

PATIENT
  Sex: Male
  Weight: 106.69 kg

DRUGS (4)
  1. IMURAN [Concomitant]
     Active Substance: AZATHIOPRINE
     Indication: CROHN^S DISEASE
     Dates: end: 20150506
  2. HUMIRA [Suspect]
     Active Substance: ADALIMUMAB
     Indication: CROHN^S DISEASE
     Route: 058
     Dates: start: 20141105
  3. PANTOLOC [Concomitant]
     Active Substance: PANTOPRAZOLE SODIUM
     Indication: CROHN^S DISEASE
     Dates: end: 20150506
  4. HUMIRA [Suspect]
     Active Substance: ADALIMUMAB
     Dosage: ALTERNATING BETWEEN 80 MG AND 40 MG WEEKLY
     Route: 058
     Dates: start: 20141226, end: 20150506

REACTIONS (2)
  - Gastric disorder [Unknown]
  - Drug effect incomplete [Not Recovered/Not Resolved]
